FAERS Safety Report 11546282 (Version 1)
Quarter: 2015Q3

REPORT INFORMATION
  Report Type: Spontaneous
  Country: BR (occurrence: BR)
  Receive Date: 20150924
  Receipt Date: 20150924
  Transmission Date: 20151125
  Serious: Yes (Life-Threatening, Other)
  Sender: FDA-Public Use
  Company Number: PHHY2015BR114607

PATIENT
  Sex: Female
  Weight: 90 kg

DRUGS (2)
  1. SUTENT [Suspect]
     Active Substance: SUNITINIB MALATE
     Indication: GASTROINTESTINAL STROMAL TUMOUR
     Dosage: 50 MG, QHS, CYCLE OF 4 TO 2
     Route: 048
     Dates: start: 20150825
  2. IMATINIB [Suspect]
     Active Substance: IMATINIB
     Indication: PRODUCT USED FOR UNKNOWN INDICATION
     Dosage: UNK UNK, QD (IN THE MORNING)
     Route: 065

REACTIONS (5)
  - Metastases to peritoneum [Unknown]
  - Metastases to liver [Unknown]
  - Malaise [Recovered/Resolved]
  - Nausea [Unknown]
  - Apparent death [Unknown]
